FAERS Safety Report 4631216-7 (Version None)
Quarter: 2005Q2

REPORT INFORMATION
  Report Type: 
  Country: None (occurrence: None)
  Receive Date: 20050407
  Receipt Date: 20050407
  Transmission Date: 20051028
  Serious: No
  Sender: FDA-Public Use
  Company Number: None

PATIENT
  Sex: Male
  Weight: 14 kg

DRUGS (1)
  1. EMLA [Suspect]
     Indication: THERAPEUTIC PROCEDURE
     Dosage: QUARTER-SIZED DOLLOP TO PORTSITE
     Dates: start: 20050405

REACTIONS (3)
  - APPLICATION SITE ERYTHEMA [None]
  - APPLICATION SITE IRRITATION [None]
  - PHARMACEUTICAL PRODUCT COMPLAINT [None]
